FAERS Safety Report 5051400-0 (Version None)
Quarter: 2006Q3

REPORT INFORMATION
  Report Type: 
  Country: None (occurrence: None)
  Receive Date: 20060714
  Receipt Date: 20060619
  Transmission Date: 20061208
  Serious: Yes (Other)
  Sender: FDA-Public Use
  Company Number: 2006UW13874

PATIENT
  Age: 803 Month
  Sex: Female
  Weight: 84.5 kg

DRUGS (3)
  1. CRESTOR [Suspect]
     Indication: BLOOD CHOLESTEROL INCREASED
     Route: 048
     Dates: start: 20051001, end: 20060201
  2. ALTACE [Concomitant]
     Indication: HYPERTENSION
     Route: 048
  3. ADVIL [Concomitant]
     Indication: ARTHRITIS
     Route: 048

REACTIONS (6)
  - BLOOD CREATINE PHOSPHOKINASE INCREASED [None]
  - CHOKING [None]
  - COUGH [None]
  - GINGIVAL PAIN [None]
  - GLOSSODYNIA [None]
  - PAIN [None]
